FAERS Safety Report 5396314-1 (Version None)
Quarter: 2007Q3

REPORT INFORMATION
  Report Type: 
  Country: None (occurrence: None)
  Receive Date: 20070725
  Receipt Date: 20070716
  Transmission Date: 20080115
  Serious: Yes (Hospitalization)
  Sender: FDA-Public Use
  Company Number: US-ELI_LILLY_AND_COMPANY-US200707003813

PATIENT
  Age: 83 Year
  Sex: Female

DRUGS (6)
  1. BYETTA [Suspect]
     Indication: TYPE 2 DIABETES MELLITUS
     Dosage: 5 UG, 2/D
     Route: 058
     Dates: start: 20050101, end: 20050101
  2. BYETTA [Suspect]
     Dosage: 10 UG, 2/D
     Route: 058
     Dates: start: 20050101, end: 20070531
  3. BYETTA [Suspect]
     Dosage: 10 UG, 2/D
     Route: 058
     Dates: start: 20070604
  4. ACTOS [Concomitant]
     Indication: DIABETES MELLITUS
     Dosage: 1 UNK, DAILY (1/D)
     Route: 048
  5. PRANDIN /USA/ [Concomitant]
     Indication: DIABETES MELLITUS
     Dosage: 45 MG, EACH MORNING
     Route: 048
  6. PRANDIN /USA/ [Concomitant]
     Dosage: 90 MG, EACH EVENING
     Route: 048

REACTIONS (7)
  - ASTHENIA [None]
  - DIARRHOEA [None]
  - INFECTION [None]
  - MALAISE [None]
  - MUSCLE SPASMS [None]
  - NAUSEA [None]
  - RECTAL HAEMORRHAGE [None]
